FAERS Safety Report 4413306-7 (Version None)
Quarter: 2004Q3

REPORT INFORMATION
  Report Type: 
  Country: None (occurrence: None)
  Receive Date: 20040802
  Receipt Date: 20040713
  Transmission Date: 20050211
  Serious: Yes (Hospitalization, Other)
  Sender: FDA-Public Use
  Company Number: PHBS2004IL09320

PATIENT
  Age: 10 Month
  Sex: Male

DRUGS (5)
  1. ELIDEL [Suspect]
     Indication: DERMATITIS ATOPIC
     Dosage: UNK, BID
     Route: 061
     Dates: start: 20040101, end: 20040601
  2. EMOLLIENTS AND PROTECTIVES [Concomitant]
     Route: 065
  3. HYDROCORTISONE [Concomitant]
     Dosage: INTERMITTENT USE
     Route: 065
  4. CIDALIN [Concomitant]
     Dosage: UNK, QD
     Route: 065
     Dates: start: 20040201
  5. AFLUMYCIN [Concomitant]

REACTIONS (8)
  - ALANINE AMINOTRANSFERASE INCREASED [None]
  - ASPARTATE AMINOTRANSFERASE INCREASED [None]
  - CONDITION AGGRAVATED [None]
  - DERMATITIS ATOPIC [None]
  - FOOD ALLERGY [None]
  - HEPATIC ENZYME INCREASED [None]
  - MILK ALLERGY [None]
  - VIRAL UPPER RESPIRATORY TRACT INFECTION [None]
